FAERS Safety Report 5865849-7 (Version None)
Quarter: 2008Q3

REPORT INFORMATION
  Report Type: 
  Country: None (occurrence: None)
  Receive Date: 20080829
  Receipt Date: 20080820
  Transmission Date: 20090109
  Serious: Yes (Hospitalization, Other)
  Sender: FDA-Public Use
  Company Number: US-ELI_LILLY_AND_COMPANY-US200706000610

PATIENT
  Sex: Female

DRUGS (3)
  1. FORTEO [Suspect]
     Indication: OSTEOPOROSIS
     Dosage: 20 UG, DAILY (1/D)
     Dates: start: 20060822, end: 20070101
  2. FORTEO [Suspect]
     Dosage: UNK, UNK
     Dates: start: 20070101
  3. CALTRATE [Concomitant]

REACTIONS (10)
  - BACK PAIN [None]
  - FALL [None]
  - FRACTURE [None]
  - HIP FRACTURE [None]
  - INJECTION SITE HAEMATOMA [None]
  - INJECTION SITE IRRITATION [None]
  - INJECTION SITE PAIN [None]
  - INJECTION SITE PUSTULE [None]
  - INJECTION SITE SWELLING [None]
  - NERVOUSNESS [None]
